FAERS Safety Report 11665158 (Version 1)
Quarter: 2015Q4

REPORT INFORMATION
  Report Type: Spontaneous
  Country: US (occurrence: US)
  Receive Date: 20151027
  Receipt Date: 20151027
  Transmission Date: 20160304
  Serious: No
  Sender: FDA-Public Use
  Company Number: US-HORIZON-PEN-0195-2015

PATIENT
  Sex: Male

DRUGS (1)
  1. PENNSAID [Suspect]
     Active Substance: DICLOFENAC SODIUM
     Indication: ARTHRALGIA
     Dosage: 1 PUMP TWICE DAILY
     Dates: start: 20151013, end: 20151016

REACTIONS (3)
  - Drug dose omission [Unknown]
  - Product container issue [Unknown]
  - Off label use [Unknown]
